FAERS Safety Report 8190063 (Version 2)
Quarter: 2013Q1

REPORT INFORMATION
  Report Type: Spontaneous
  Country: US (occurrence: US)
  Receive Date: 20111019
  Receipt Date: 20130328
  Transmission Date: 20140127
  Serious: No
  Sender: FDA-Public Use
  Company Number: US-B.I. PHARMACEUTICALS,INC./RIDGEFIELD-2011-BP-24451BP

PATIENT
  Age: 88 None
  Sex: Female

DRUGS (5)
  1. PRADAXA [Suspect]
     Indication: ATRIAL FIBRILLATION
     Dosage: 300 MG
     Route: 048
     Dates: start: 20111004
  2. METOPROLOL [Concomitant]
     Indication: HYPERTENSION
     Dosage: 100 MG
     Route: 048
     Dates: start: 1971
  3. SERTRALINE [Concomitant]
     Indication: DEPRESSION
     Dosage: 25 MG
     Route: 048
     Dates: start: 1997
  4. SPIRONOLACTONE [Concomitant]
     Indication: FLUID RETENTION
     Dosage: 25 MG
     Route: 048
     Dates: start: 2006
  5. BIOTIN [Concomitant]
     Indication: ONYCHOCLASIS
     Route: 048
     Dates: start: 2010

REACTIONS (8)
  - Dyspepsia [Not Recovered/Not Resolved]
  - Abdominal discomfort [Not Recovered/Not Resolved]
  - Oesophageal pain [Not Recovered/Not Resolved]
  - Contusion [Not Recovered/Not Resolved]
  - Decreased appetite [Not Recovered/Not Resolved]
  - Headache [Not Recovered/Not Resolved]
  - Vaginal discharge [Not Recovered/Not Resolved]
  - Dyspepsia [Not Recovered/Not Resolved]
